FAERS Safety Report 9633652 (Version 1)
Quarter: 2013Q4

REPORT INFORMATION
  Report Type: Spontaneous
  Country: US (occurrence: None)
  Receive Date: 20131017
  Receipt Date: 20131017
  Transmission Date: 20140711
  Serious: Yes (Death, Hospitalization, Other)
  Sender: FDA-Public Use
  Company Number: DAV-AE-ALP-13-25

PATIENT
  Age: 23 Year
  Sex: Male

DRUGS (2)
  1. ALPRAZOLAM [Suspect]
     Indication: SUBSTANCE ABUSE
     Route: 045
  2. METHADONE [Concomitant]

REACTIONS (9)
  - Toxicity to various agents [None]
  - Rhabdomyolysis [None]
  - Necrosis [None]
  - Loss of consciousness [None]
  - Unresponsive to stimuli [None]
  - Pulse absent [None]
  - Dyspnoea [None]
  - Multi-organ failure [None]
  - Brain injury [None]
